FAERS Safety Report 7200712-0 (Version None)
Quarter: 2010Q4

REPORT INFORMATION
  Report Type: 
  Country: None (occurrence: None)
  Receive Date: 20101228
  Receipt Date: 20101218
  Transmission Date: 20110411
  Serious: Yes (Other)
  Sender: FDA-Public Use
  Company Number: US-PFIZER INC-2010080804

PATIENT
  Sex: Female
  Weight: 89.342 kg

DRUGS (4)
  1. CHANTIX [Suspect]
     Indication: SMOKING CESSATION THERAPY
     Dosage: UNK
     Route: 048
     Dates: start: 20100601, end: 20100801
  2. LORAZEPAM [Concomitant]
     Indication: ANXIETY
     Dosage: UNK
  3. ZOLPIDEM [Concomitant]
     Indication: ANXIETY
     Dosage: UNK
  4. TEMAZEPAM [Concomitant]
     Dosage: UNK

REACTIONS (6)
  - HALLUCINATION [None]
  - HALLUCINATION, AUDITORY [None]
  - PARANOIA [None]
  - PSYCHIATRIC SYMPTOM [None]
  - PSYCHOTIC DISORDER [None]
  - SUICIDAL IDEATION [None]
